FAERS Safety Report 4929801-8 (Version None)
Quarter: 2006Q1

REPORT INFORMATION
  Report Type: 
  Country: None (occurrence: None)
  Receive Date: 20060224
  Receipt Date: 20060215
  Transmission Date: 20060701
  Serious: Yes (Other)
  Sender: FDA-Public Use
  Company Number: HQWYE718828NOV05

PATIENT
  Age: 59 Year
  Sex: Female
  Weight: 90.8 kg

DRUGS (2)
  1. PREMARIN [Suspect]
     Indication: OESTROGEN REPLACEMENT THERAPY
  2. PROVERA [Suspect]
     Indication: HORMONE REPLACEMENT THERAPY

REACTIONS (8)
  - BREAST CANCER METASTATIC [None]
  - LYMPHOEDEMA [None]
  - METASTASES TO LIVER [None]
  - METASTASES TO LUNG [None]
  - NEUROPATHY PERIPHERAL [None]
  - OESTROGEN RECEPTOR ASSAY POSITIVE [None]
  - SMEAR CERVIX ABNORMAL [None]
  - STEM CELL TRANSPLANT [None]
